FAERS Safety Report 9154320 (Version 5)
Quarter: 2020Q4

REPORT INFORMATION
  Report Type: Spontaneous
  Country: US (occurrence: US)
  Receive Date: 20130311
  Receipt Date: 20201228
  Transmission Date: 20210114
  Serious: Yes (Hospitalization, Other)
  Sender: FDA-Public Use
  Company Number: US-PFIZER INC-2013080531

PATIENT
  Age: 56 Year
  Sex: Female
  Weight: 57.14 kg

DRUGS (2)
  1. LYRICA [Suspect]
     Active Substance: PREGABALIN
     Indication: PARTIAL SEIZURES
     Dosage: 400 MG, DAILY (400MG A DAY, 100MG IN MORNING, 100MG IN AFTERNOON AND TWO CAPSULES OF 100MG AT NIGHT)
     Route: 048
     Dates: start: 200805
  2. LYRICA [Suspect]
     Active Substance: PREGABALIN
     Indication: SEIZURE
     Dosage: 150 MG, 1X/DAY (150MG A DAY)
     Dates: start: 200702, end: 2008

REACTIONS (1)
  - Drug ineffective [Recovered/Resolved]

NARRATIVE: CASE EVENT DATE: 2008
